FAERS Safety Report 7772090-X (Version None)
Quarter: 2011Q3

REPORT INFORMATION
  Report Type: 
  Country: None (occurrence: None)
  Receive Date: 20110922
  Receipt Date: 20101108
  Transmission Date: 20111222
  Serious: Yes (Hospitalization, Other)
  Sender: FDA-Public Use
  Company Number: US-ASTRAZENECA-2010SE48610

PATIENT
  Age: 14767 Day
  Sex: Female

DRUGS (6)
  1. SEROQUEL [Suspect]
     Dosage: 100 MG TWO TIMES DAILY
     Route: 048
     Dates: start: 20090623, end: 20100924
  2. SEROQUEL [Suspect]
     Indication: PSYCHOTIC DISORDER
     Route: 048
  3. XANAX [Concomitant]
     Indication: ANXIETY
     Route: 048
  4. STATIN FOR CHOLESTEROL [Concomitant]
     Indication: HYPERCHOLESTEROLAEMIA
  5. SEROQUEL [Suspect]
     Route: 048
     Dates: start: 20090623, end: 20100924
  6. PROZAC [Concomitant]
     Indication: DEPRESSION
     Route: 048

REACTIONS (2)
  - RHABDOMYOLYSIS [None]
  - RENAL FAILURE [None]
